FAERS Safety Report 5873700-4 (Version None)
Quarter: 2008Q3

REPORT INFORMATION
  Report Type: 
  Country: None (occurrence: None)
  Receive Date: 20080908
  Receipt Date: 20080902
  Transmission Date: 20090109
  Serious: Yes (Hospitalization)
  Sender: FDA-Public Use
  Company Number: B0535649A

PATIENT
  Age: 56 Year
  Sex: Female
  Weight: 62 kg

DRUGS (4)
  1. TOPOTECAN [Suspect]
     Indication: OVARIAN CANCER
     Dosage: 4.7MG PER DAY
     Route: 042
     Dates: start: 20080626, end: 20080819
  2. LAPATINIB [Suspect]
     Indication: OVARIAN CANCER
     Dosage: 1250MG PER DAY
     Route: 048
     Dates: start: 20080626, end: 20080819
  3. ANTICOAGULANTS [Concomitant]
     Dates: start: 20080701
  4. GLUCOVANCE [Concomitant]

REACTIONS (3)
  - HYPERGLYCAEMIA [None]
  - THROMBOSIS [None]
  - VENA CAVA THROMBOSIS [None]
